FAERS Safety Report 11987620 (Version 1)
Quarter: 2016Q1

REPORT INFORMATION
  Report Type: Spontaneous
  Country: BR (occurrence: BR)
  Receive Date: 20160202
  Receipt Date: 20160202
  Transmission Date: 20160526
  Serious: Yes (Hospitalization, Other)
  Sender: FDA-Public Use
  Company Number: BR-ACCORD-037318

PATIENT
  Age: 75 Year
  Sex: Male
  Weight: 62.5 kg

DRUGS (10)
  1. DIPIRONE [Concomitant]
     Active Substance: METAMIZOLE SODIUM
     Route: 048
     Dates: start: 20151208, end: 20151214
  2. FLUOROURACIL. [Suspect]
     Active Substance: FLUOROURACIL
     Indication: RECTAL CANCER
     Route: 042
     Dates: start: 20151023
  3. LOPERAMIDE [Concomitant]
     Active Substance: LOPERAMIDE
     Route: 048
     Dates: start: 20151019, end: 20151028
  4. OXALIPLATIN. [Concomitant]
     Active Substance: OXALIPLATIN
     Indication: RECTAL CANCER
     Route: 042
     Dates: start: 20151023, end: 20151209
  5. METOCLOPRAMIDE. [Concomitant]
     Active Substance: METOCLOPRAMIDE
     Indication: PREMEDICATION
     Route: 042
  6. NO DRUG NAME [Concomitant]
     Route: 048
     Dates: start: 20151208, end: 20151214
  7. ONDANSETRON [Concomitant]
     Active Substance: ONDANSETRON
     Indication: RECTAL CANCER
     Route: 042
     Dates: start: 20151019, end: 20151209
  8. FOLINIC ACID [Concomitant]
     Active Substance: LEUCOVORIN
     Indication: PREMEDICATION
     Route: 042
  9. AMOXICILLIN/CLAVULANIC ACID [Concomitant]
     Dosage: 500MG/125MG
     Route: 048
     Dates: start: 20151208, end: 20151214
  10. DEXAMETHASONE. [Concomitant]
     Active Substance: DEXAMETHASONE
     Indication: RECTAL CANCER
     Dosage: ALSO RECEIVED AT 8 MG UNKNOWN DATES
     Route: 048
     Dates: start: 20151019, end: 20151024

REACTIONS (8)
  - Dyspnoea [Recovered/Resolved]
  - Diarrhoea [Recovered/Resolved]
  - Acute kidney injury [Recovered/Resolved]
  - Nausea [Recovered/Resolved]
  - Mucosal inflammation [Recovered/Resolved]
  - Blood electrolytes abnormal [Recovered/Resolved]
  - Neutropenia [Recovered/Resolved]
  - Vomiting [Recovered/Resolved]

NARRATIVE: CASE EVENT DATE: 20151212
